FAERS Safety Report 23451933 (Version 1)
Quarter: 2024Q1

REPORT INFORMATION
  Report Type: Spontaneous
  Country: US (occurrence: None)
  Receive Date: 20240127
  Receipt Date: 20240127
  Transmission Date: 20240410
  Serious: Yes (Death)
  Sender: FDA-Public Use
  Company Number: None

PATIENT
  Age: 50 Year
  Sex: Male
  Weight: 83.25 kg

DRUGS (1)
  1. NEURONTIN [Suspect]
     Active Substance: GABAPENTIN

REACTIONS (4)
  - Completed suicide [None]
  - Hanging [None]
  - Obsessive thoughts [None]
  - Mental disorder [None]

NARRATIVE: CASE EVENT DATE: 20230301
